FAERS Safety Report 7455541-X (Version None)
Quarter: 2011Q2

REPORT INFORMATION
  Report Type: 
  Country: None (occurrence: None)
  Receive Date: 20110503
  Receipt Date: 20110427
  Transmission Date: 20111010
  Serious: Yes (Other)
  Sender: FDA-Public Use
  Company Number: US-ROCHE-749861

PATIENT
  Sex: Male
  Weight: 99.8 kg

DRUGS (3)
  1. ACCUTANE [Suspect]
     Route: 065
     Dates: start: 19820101, end: 19830101
  2. ACCUTANE [Suspect]
     Route: 065
     Dates: start: 19840101, end: 19850101
  3. ACCUTANE [Suspect]
     Route: 065
     Dates: start: 19870101, end: 19880101

REACTIONS (8)
  - COLITIS ULCERATIVE [None]
  - INFLAMMATORY BOWEL DISEASE [None]
  - IRRITABLE BOWEL SYNDROME [None]
  - RENAL DISORDER [None]
  - GASTROINTESTINAL INJURY [None]
  - DEPRESSION [None]
  - HEPATIC ENZYME INCREASED [None]
  - BLOOD TRIGLYCERIDES INCREASED [None]
